FAERS Safety Report 25600049 (Version 1)
Quarter: 2025Q3

REPORT INFORMATION
  Report Type: Spontaneous
  Country: CN (occurrence: CN)
  Receive Date: 20250724
  Receipt Date: 20250724
  Transmission Date: 20251020
  Serious: No
  Sender: ALKEM
  Company Number: CN-ALKEM LABORATORIES LIMITED-CN-ALKEM-2024-24502

PATIENT
  Age: 36 Year
  Sex: Female

DRUGS (17)
  1. LAMOTRIGINE [Suspect]
     Active Substance: LAMOTRIGINE
     Indication: Neuronal ceroid lipofuscinosis
     Dosage: 0.5 MILLIGRAM, QD
     Route: 065
  2. LAMOTRIGINE [Suspect]
     Active Substance: LAMOTRIGINE
     Route: 065
  3. MYCOPHENOLATE MOFETIL [Suspect]
     Active Substance: MYCOPHENOLATE MOFETIL
     Indication: Neuronal ceroid lipofuscinosis
     Route: 065
  4. METHYLPREDNISOLONE [Suspect]
     Active Substance: METHYLPREDNISOLONE
     Indication: Neuronal ceroid lipofuscinosis
     Route: 065
  5. TRIHEXYPHENIDYL [Suspect]
     Active Substance: TRIHEXYPHENIDYL
     Indication: Neuronal ceroid lipofuscinosis
     Route: 065
  6. TRIHEXYPHENIDYL [Suspect]
     Active Substance: TRIHEXYPHENIDYL
     Route: 065
  7. CLONAZEPAM [Suspect]
     Active Substance: CLONAZEPAM
     Indication: Neuronal ceroid lipofuscinosis
     Route: 065
  8. DONEPEZIL [Suspect]
     Active Substance: DONEPEZIL
     Indication: Neuronal ceroid lipofuscinosis
     Route: 065
  9. IDEBENONE [Suspect]
     Active Substance: IDEBENONE
     Indication: Neuronal ceroid lipofuscinosis
     Route: 065
  10. IMMUNE GLOBULIN NOS [Suspect]
     Active Substance: IMMUNE GLOBULIN NOS
     Indication: Neuronal ceroid lipofuscinosis
     Route: 042
  11. LEVODOPA [Suspect]
     Active Substance: LEVODOPA
     Indication: Neuronal ceroid lipofuscinosis
     Dosage: 0.375 GRAM, QD
     Route: 065
  12. LEVODOPA [Suspect]
     Active Substance: LEVODOPA
     Route: 065
  13. PREDNISONE [Suspect]
     Active Substance: PREDNISONE
     Indication: Neuronal ceroid lipofuscinosis
     Route: 048
  14. VALPROATE SODIUM [Suspect]
     Active Substance: VALPROATE SODIUM
     Indication: Neuronal ceroid lipofuscinosis
     Dosage: 1 GRAM, QD
     Route: 065
  15. VALPROATE SODIUM [Suspect]
     Active Substance: VALPROATE SODIUM
     Route: 065
  16. LEVOTHYROXINE [Concomitant]
     Active Substance: LEVOTHYROXINE
     Indication: Autoimmune thyroiditis
     Route: 065
  17. LEVOTHYROXINE [Concomitant]
     Active Substance: LEVOTHYROXINE
     Indication: Hypothyroidism

REACTIONS (1)
  - Treatment failure [Unknown]
